FAERS Safety Report 5686668-0 (Version None)
Quarter: 2008Q1

REPORT INFORMATION
  Report Type: 
  Country: None (occurrence: None)
  Receive Date: 20080328
  Receipt Date: 20070605
  Transmission Date: 20080703
  Serious: No
  Sender: FDA-Public Use
  Company Number: US-BAYER-US-2007-021182

PATIENT
  Age: 20 Year
  Sex: Female
  Weight: 67 kg

DRUGS (3)
  1. MIRENA [Suspect]
     Route: 015
     Dates: start: 20070101
  2. VITAMINS [Concomitant]
  3. PROZAC [Concomitant]
     Dates: end: 20070101

REACTIONS (3)
  - ABDOMINAL PAIN [None]
  - FREQUENT BOWEL MOVEMENTS [None]
  - METRORRHAGIA [None]
